FAERS Safety Report 20503322 (Version 1)
Quarter: 2022Q1

REPORT INFORMATION
  Report Type: Spontaneous
  Country: US (occurrence: None)
  Receive Date: 20220220
  Receipt Date: 20220220
  Transmission Date: 20220423
  Serious: Yes (Other)
  Sender: FDA-Public Use
  Company Number: None

PATIENT
  Age: 50 Year
  Sex: Male
  Weight: 63 kg

DRUGS (1)
  1. CIALIS [Suspect]
     Active Substance: TADALAFIL
     Indication: Erectile dysfunction
     Dates: start: 20210201

REACTIONS (5)
  - Ocular hyperaemia [None]
  - Dry eye [None]
  - Eye irritation [None]
  - Swelling face [None]
  - Vascular rupture [None]

NARRATIVE: CASE EVENT DATE: 20220219
